FAERS Safety Report 13697996 (Version 3)
Quarter: 2017Q3

REPORT INFORMATION
  Report Type: Spontaneous
  Country: US (occurrence: US)
  Receive Date: 20170628
  Receipt Date: 20170804
  Transmission Date: 20171127
  Serious: No
  Sender: FDA-Public Use
  Company Number: US-PFIZER INC-2017280376

PATIENT
  Age: 48 Year
  Sex: Female

DRUGS (2)
  1. XELJANZ XR [Suspect]
     Active Substance: TOFACITINIB CITRATE
     Indication: RHEUMATOID ARTHRITIS
     Dosage: 11 MG, DAILY
     Route: 048
     Dates: start: 20170606
  2. METHOTREXATE SODIUM. [Suspect]
     Active Substance: METHOTREXATE SODIUM
     Indication: RHEUMATOID ARTHRITIS
     Dosage: 20 MG, WEEKLY

REACTIONS (17)
  - Musculoskeletal stiffness [Recovering/Resolving]
  - Muscle rigidity [Unknown]
  - Dyspnoea [Unknown]
  - Arthralgia [Unknown]
  - Peripheral swelling [Recovering/Resolving]
  - Poor quality sleep [Unknown]
  - Crepitations [Unknown]
  - Cough [Unknown]
  - Joint swelling [Recovering/Resolving]
  - Muscle spasms [Unknown]
  - Back pain [Unknown]
  - Sleep disorder [Unknown]
  - Wheezing [Unknown]
  - Myalgia [Unknown]
  - Anxiety [Recovering/Resolving]
  - Depression [Recovering/Resolving]
  - Condition aggravated [Recovering/Resolving]
